FAERS Safety Report 15431477 (Version 1)
Quarter: 2018Q3

REPORT INFORMATION
  Report Type: Spontaneous
  Country: US (occurrence: US)
  Receive Date: 20180926
  Receipt Date: 20180926
  Transmission Date: 20181010
  Serious: Yes (Other)
  Sender: FDA-Public Use
  Company Number: US-PFIZER INC-2018387467

PATIENT
  Sex: Female

DRUGS (1)
  1. PROTONIX [Suspect]
     Active Substance: PANTOPRAZOLE SODIUM
     Indication: BARRETT^S OESOPHAGUS
     Dosage: UNK UNK, 2X/DAY
     Dates: start: 2010

REACTIONS (9)
  - Amnesia [Unknown]
  - Pharyngeal polyp [Unknown]
  - Product use in unapproved indication [Unknown]
  - Blood pressure abnormal [Unknown]
  - Gastric polyps [Unknown]
  - Intestinal polyp [Unknown]
  - Dementia Alzheimer^s type [Unknown]
  - Swelling [Unknown]
  - Pain [Unknown]
